FAERS Safety Report 23532222 (Version 1)
Quarter: 2024Q1

REPORT INFORMATION
  Report Type: Spontaneous
  Country: US (occurrence: US)
  Receive Date: 20240216
  Receipt Date: 20240216
  Transmission Date: 20240410
  Serious: Yes (Other)
  Sender: FDA-Public Use
  Company Number: TEVA-US-08Feb2024-5770(V1)

PATIENT
  Sex: Female

DRUGS (2)
  1. BENDEKA [Suspect]
     Active Substance: BENDAMUSTINE HYDROCHLORIDE
     Indication: Follicular lymphoma stage III
     Dosage: UNK, CYCLE 1
     Route: 042
     Dates: start: 202312
  2. BENDEKA [Suspect]
     Active Substance: BENDAMUSTINE HYDROCHLORIDE
     Dosage: UNK, CYCLE 2
     Route: 042
     Dates: start: 202401

REACTIONS (2)
  - Thrombosis [Unknown]
  - Injection site pain [Unknown]
